FAERS Safety Report 16550189 (Version 1)
Quarter: 2019Q3

REPORT INFORMATION
  Report Type: Spontaneous
  Country: US (occurrence: US)
  Receive Date: 20190709
  Receipt Date: 20190709
  Transmission Date: 20191004
  Serious: Yes (Other)
  Sender: FDA-Public Use
  Company Number: None

PATIENT
  Age: 44 Year
  Sex: Male
  Weight: 72.9 kg

DRUGS (3)
  1. TOPIRAMATE. [Concomitant]
     Active Substance: TOPIRAMATE
  2. EPIDIOLEX [Suspect]
     Active Substance: CANNABIDIOL
     Indication: SEIZURE
     Route: 048
     Dates: start: 20190607, end: 20190708
  3. LAMOTRIGENE [Concomitant]
     Active Substance: LAMOTRIGINE

REACTIONS (1)
  - Aggression [None]

NARRATIVE: CASE EVENT DATE: 20190708
